FAERS Safety Report 12466668 (Version 1)
Quarter: 2016Q2

REPORT INFORMATION
  Report Type: Other
  Country: US (occurrence: US)
  Receive Date: 20160615
  Receipt Date: 20160615
  Transmission Date: 20160815
  Serious: No
  Sender: FDA-Public Use
  Company Number: US-GLENMARK PHARMACEUTICALS INC, USA.-2016GMK022341

PATIENT

DRUGS (1)
  1. DESMOPRESSIN ACETATE TABLETS [Suspect]
     Active Substance: DESMOPRESSIN ACETATE
     Indication: PRODUCT USED FOR UNKNOWN INDICATION
     Dosage: UNK

REACTIONS (4)
  - Drug effect decreased [Unknown]
  - Extra dose administered [Unknown]
  - Drug ineffective [Unknown]
  - Product quality issue [None]
